FAERS Safety Report 14942188 (Version 1)
Quarter: 2018Q2

REPORT INFORMATION
  Report Type: Other
  Country: FR (occurrence: FR)
  Receive Date: 20180528
  Receipt Date: 20180528
  Transmission Date: 20180711
  Serious: Yes (Hospitalization)
  Sender: FDA-Public Use
  Company Number: FR-MACLEODS PHARMACEUTICALS US LTD-MAC2018013732

PATIENT

DRUGS (4)
  1. ZOPICLONE [Concomitant]
     Active Substance: ZOPICLONE
     Indication: INSOMNIA
     Dosage: 7.5 MILLIGRAM, QD
     Route: 048
     Dates: start: 20170701
  2. VALIUM ROCHE  2 MG [Concomitant]
     Indication: PSYCHOTIC DISORDER
     Dosage: 4 MILLIGRAM, QD
     Route: 048
     Dates: start: 20170707
  3. ARIPIPRAZOLE  10 MG [Suspect]
     Active Substance: ARIPIPRAZOLE
     Indication: PSYCHOTIC DISORDER
     Dosage: 10 MILLIGRAM, QD
     Route: 048
     Dates: start: 20170713, end: 20171227
  4. PAROXETINE. [Concomitant]
     Active Substance: PAROXETINE
     Indication: DEPRESSION
     Dosage: 1 DOSAGE FORM, QD
     Route: 048
     Dates: start: 20170710, end: 20171123

REACTIONS (2)
  - Exhibitionism [Recovering/Resolving]
  - Inappropriate affect [Recovering/Resolving]

NARRATIVE: CASE EVENT DATE: 20171106
